FAERS Safety Report 5449748-0 (Version None)
Quarter: 2007Q3

REPORT INFORMATION
  Report Type: 
  Country: None (occurrence: None)
  Receive Date: 20070912
  Receipt Date: 20070904
  Transmission Date: 20080115
  Serious: Yes (Hospitalization)
  Sender: FDA-Public Use
  Company Number: HQWYE554015AUG07

PATIENT
  Sex: Female

DRUGS (4)
  1. HYPEN [Suspect]
     Indication: BACK PAIN
     Route: 048
     Dates: start: 20070723, end: 20070728
  2. SULFAMETHOXAZOLE AND TRIMETHOPRIM [Concomitant]
     Dosage: NOT SPECIFIED
     Dates: start: 20061228
  3. PREDNISOLONE [Concomitant]
     Dosage: NOT SPECIFIED
     Dates: start: 20070111
  4. FAMOTIDINE [Concomitant]
     Dosage: NOT SPECIFIED
     Dates: start: 20061228

REACTIONS (1)
  - INTERSTITIAL LUNG DISEASE [None]
